FAERS Safety Report 9099821 (Version 2)
Quarter: 2013Q2

REPORT INFORMATION
  Report Type: Spontaneous
  Country: US (occurrence: US)
  Receive Date: 20130214
  Receipt Date: 20130515
  Transmission Date: 20140414
  Serious: Yes (Hospitalization)
  Sender: FDA-Public Use
  Company Number: US-BAYER-2013-018316

PATIENT
  Age: 43 Year
  Sex: Female
  Weight: 73.92 kg

DRUGS (8)
  1. YAZ [Suspect]
     Indication: MENOMETRORRHAGIA
     Dosage: UNK
     Dates: start: 2007, end: 2008
  2. YASMIN [Suspect]
     Dosage: UNK
     Dates: start: 2007, end: 2008
  3. OCELLA [Suspect]
     Dosage: UNK
     Dates: start: 2007, end: 2008
  4. CITALOPRAM [Concomitant]
     Dosage: 20 MG, DAILY
  5. LEVAQUIN [Concomitant]
     Dosage: 500 MG, DAILY FOR 10 DAYS
  6. PROVENTIL HFA [Concomitant]
     Indication: WHEEZING
     Dosage: 2 PUFFS EVERY 4 TO 6 HOURS AS NEEDED
  7. CHLORPHENIRAMINE W/HYDROCODONE [Concomitant]
     Indication: COUGH
     Dosage: 8MG EVERY 12 HOURS AS NEEDED
  8. PANTOPRAZOLE [Concomitant]
     Dosage: 40 MG, TWICE DAILY

REACTIONS (8)
  - Pulmonary embolism [Recovered/Resolved]
  - Injury [Recovered/Resolved]
  - Pain [Recovered/Resolved]
  - Emotional distress [None]
  - Abdominal pain [None]
  - General physical health deterioration [Recovered/Resolved]
  - Anxiety [None]
  - Pain [None]
